FAERS Safety Report 8328172-7 (Version None)
Quarter: 2012Q2

REPORT INFORMATION
  Report Type: 
  Country: None (occurrence: None)
  Receive Date: 20120502
  Receipt Date: 20120426
  Transmission Date: 20120825
  Serious: Yes (Death, Hospitalization)
  Sender: FDA-Public Use
  Company Number: FR-PFIZER INC-2012103592

PATIENT
  Age: 73 Year
  Sex: Male

DRUGS (1)
  1. SUTENT [Suspect]
     Indication: GASTROINTESTINAL STROMAL TUMOUR
     Dosage: 37.5 MG, 1X/DAY
     Route: 048
     Dates: start: 20111201

REACTIONS (5)
  - HEPATIC PAIN [None]
  - MENTAL STATUS CHANGES [None]
  - BACK PAIN [None]
  - SEPTIC SHOCK [None]
  - RENAL FAILURE ACUTE [None]
